FAERS Safety Report 18592200 (Version 1)
Quarter: 2020Q4

REPORT INFORMATION
  Report Type: Spontaneous
  Country: US (occurrence: US)
  Receive Date: 20201208
  Receipt Date: 20201208
  Transmission Date: 20210114
  Serious: Yes (Death)
  Sender: FDA-Public Use
  Company Number: US-PFIZER INC-2020082997

PATIENT
  Age: 72 Year
  Sex: Female

DRUGS (1)
  1. CAMPTOSAR [Suspect]
     Active Substance: IRINOTECAN HYDROCHLORIDE
     Indication: GALLBLADDER CANCER
     Dosage: 482 MG, EVERY 3 WEEKS

REACTIONS (2)
  - Death [Fatal]
  - Off label use [Unknown]
